FAERS Safety Report 6697634-0 (Version None)
Quarter: 2010Q2

REPORT INFORMATION
  Report Type: 
  Country: None (occurrence: None)
  Receive Date: 20100426
  Receipt Date: 20100419
  Transmission Date: 20101027
  Serious: Yes (Life-Threatening)
  Sender: FDA-Public Use
  Company Number: MX-ABBOTT-10P-107-0639701-00

PATIENT
  Sex: Male
  Weight: 61.5 kg

DRUGS (6)
  1. KALETRA [Suspect]
     Indication: HIV INFECTION
     Dates: start: 20091211, end: 20100322
  2. TRUVADA [Concomitant]
     Indication: ACQUIRED IMMUNODEFICIENCY SYNDROME
     Dosage: 200/300 MG, 1 EVERY 24 HOURS
     Dates: start: 20090211
  3. VITAMIN B COMPLEX CAP [Concomitant]
     Indication: ACQUIRED IMMUNODEFICIENCY SYNDROME
     Dates: start: 20091211
  4. FOLIC ACID [Concomitant]
     Indication: ACQUIRED IMMUNODEFICIENCY SYNDROME
     Dates: start: 20091211
  5. FLUCONAZOLE [Concomitant]
     Indication: ACQUIRED IMMUNODEFICIENCY SYNDROME
     Dates: start: 20091211
  6. SULFAMETHOXAZOLE AND TRIMETHOPRIM [Concomitant]
     Indication: ACQUIRED IMMUNODEFICIENCY SYNDROME
     Dates: start: 20091211, end: 20100415

REACTIONS (5)
  - BLOOD CHOLESTEROL INCREASED [None]
  - BLOOD GLUCOSE INCREASED [None]
  - BLOOD INSULIN INCREASED [None]
  - BLOOD TRIGLYCERIDES INCREASED [None]
  - GLUCOSE URINE PRESENT [None]
